FAERS Safety Report 18455756 (Version 1)
Quarter: 2020Q4

REPORT INFORMATION
  Report Type: Spontaneous
  Country: US (occurrence: US)
  Receive Date: 20201103
  Receipt Date: 20201103
  Transmission Date: 20210114
  Serious: No
  Sender: FDA-Public Use
  Company Number: US-ASTRAZENECA-2020SF38857

PATIENT
  Sex: Female

DRUGS (6)
  1. LOSARTIN [Concomitant]
     Active Substance: LOSARTAN
     Indication: BLOOD PRESSURE MEASUREMENT
  2. FASENRA [Suspect]
     Active Substance: BENRALIZUMAB
     Route: 058
  3. DICLOFENAC [Concomitant]
     Active Substance: DICLOFENAC
  4. METHOCARBAMOL. [Concomitant]
     Active Substance: METHOCARBAMOL
  5. CODEINE [Concomitant]
     Active Substance: CODEINE
     Indication: PAIN
  6. OXYCONTIN [Concomitant]
     Active Substance: OXYCODONE HYDROCHLORIDE
     Indication: PAIN

REACTIONS (2)
  - Injection site mass [Unknown]
  - Contusion [Unknown]
